FAERS Safety Report 7798633-8 (Version None)
Quarter: 2011Q4

REPORT INFORMATION
  Report Type: 
  Country: None (occurrence: None)
  Receive Date: 20111005
  Receipt Date: 20110927
  Transmission Date: 20120403
  Serious: Yes (Hospitalization)
  Sender: FDA-Public Use
  Company Number: US-CELGENEUS-163-21880-11082720

PATIENT
  Sex: Female

DRUGS (11)
  1. REVLIMID [Suspect]
     Dosage: 15 MILLIGRAM
     Route: 048
     Dates: start: 20100601
  2. OXYCODONE HCL [Concomitant]
     Route: 065
  3. ZOMETA [Concomitant]
     Route: 065
  4. REVLIMID [Suspect]
     Dosage: 10 MILLIGRAM
     Route: 048
     Dates: start: 20110601
  5. REVLIMID [Suspect]
     Indication: MULTIPLE MYELOMA
     Dosage: 25 MILLIGRAM
     Route: 048
     Dates: start: 20090801
  6. XANAX [Concomitant]
     Route: 065
  7. OXYCONTIN [Concomitant]
     Route: 065
  8. TRAZODONE HYDROCHLORIDE [Concomitant]
     Route: 065
  9. DEXAMETHASONE [Concomitant]
     Route: 065
  10. LIDOCAINE [Concomitant]
     Route: 065
  11. PRILOSEC [Concomitant]
     Route: 065

REACTIONS (3)
  - ROAD TRAFFIC ACCIDENT [None]
  - STERNAL FRACTURE [None]
  - EMOTIONAL DISTRESS [None]
